FAERS Safety Report 5740444-9 (Version None)
Quarter: 2008Q2

REPORT INFORMATION
  Report Type: 
  Country: None (occurrence: None)
  Receive Date: 20080516
  Receipt Date: 20080508
  Transmission Date: 20081010
  Serious: Yes (Hospitalization, Other)
  Sender: FDA-Public Use
  Company Number: JP-ELI_LILLY_AND_COMPANY-JP200805001475

PATIENT
  Sex: Male

DRUGS (2)
  1. GEMZAR [Suspect]
     Indication: PANCREATIC CARCINOMA
     Route: 042
  2. TS 1 [Concomitant]
     Indication: PANCREATIC CARCINOMA
     Route: 048

REACTIONS (2)
  - BONE MARROW FAILURE [None]
  - PNEUMONIA [None]
